FAERS Safety Report 25941058 (Version 1)
Quarter: 2025Q4

REPORT INFORMATION
  Report Type: Spontaneous
  Country: EU (occurrence: EU)
  Receive Date: 20251020
  Receipt Date: 20251020
  Transmission Date: 20260117
  Serious: Yes (Other)
  Sender: ROCHE
  Company Number: EU-002147023-NVSC2025DE136173

PATIENT
  Sex: Male
  Weight: 81 kg

DRUGS (7)
  1. XOLAIR [Suspect]
     Active Substance: OMALIZUMAB
     Indication: Product used for unknown indication
     Dosage: 300 MG, QMO
     Route: 065
     Dates: start: 20250806, end: 20250806
  2. XOLAIR [Suspect]
     Active Substance: OMALIZUMAB
     Dosage: 300 MG, Q4W
     Route: 065
     Dates: start: 20250902
  3. LAMOTRIGINE [Suspect]
     Active Substance: LAMOTRIGINE
     Indication: Epilepsy
     Dosage: 50 MG, BID
     Route: 048
     Dates: start: 201912
  4. LANSOPRAZOLE [Suspect]
     Active Substance: LANSOPRAZOLE
     Indication: Dyspepsia
     Dosage: 30 MG, QD
     Route: 048
     Dates: start: 20250517, end: 20250908
  5. EBASTINE [Concomitant]
     Active Substance: EBASTINE
     Indication: Chronic spontaneous urticaria
     Dosage: 10 MG, QID
     Route: 065
     Dates: start: 2025
  6. EBASTINE [Concomitant]
     Active Substance: EBASTINE
     Dosage: 20 MG, QD
     Route: 065
     Dates: start: 20250705, end: 2025
  7. CALCIUM\VITAMIN D [Concomitant]
     Active Substance: CALCIUM\VITAMIN D
     Indication: Product used for unknown indication
     Dosage: UNK, (EFFERVESCENT TABLET)
     Route: 065

REACTIONS (4)
  - Angioedema [Recovering/Resolving]
  - Pruritus [Recovering/Resolving]
  - Drug ineffective [Unknown]
  - Urticaria [Recovering/Resolving]
